FAERS Safety Report 16198728 (Version 1)
Quarter: 2019Q2

REPORT INFORMATION
  Report Type: Spontaneous
  Country: FR (occurrence: FR)
  Receive Date: 20190415
  Receipt Date: 20190415
  Transmission Date: 20190711
  Serious: Yes (Hospitalization)
  Sender: FDA-Public Use
  Company Number: FR-PFIZER INC-2019153238

PATIENT
  Sex: Male

DRUGS (6)
  1. CORTANCYL [Suspect]
     Active Substance: PREDNISONE
     Dosage: 20 MG, 1X/DAY
     Route: 063
     Dates: start: 20171004, end: 20180131
  2. CORTANCYL [Suspect]
     Active Substance: PREDNISONE
     Dosage: UNK
  3. CORTANCYL [Suspect]
     Active Substance: PREDNISONE
     Dosage: 30 MG, 1X/DAY
     Route: 064
     Dates: start: 201705, end: 20171003
  4. HUMIRA [Suspect]
     Active Substance: ADALIMUMAB
     Indication: CROHN^S DISEASE
     Dosage: 40 MG, UNK
     Route: 063
     Dates: start: 20171003
  5. HUMIRA [Suspect]
     Active Substance: ADALIMUMAB
     Dosage: 40 MG, (INDUCTION PROTOCOL 160MG J1, 80 MG TO J15)
     Route: 064
     Dates: start: 20170331, end: 20171003
  6. HYDROCORTISONE. [Suspect]
     Active Substance: HYDROCORTISONE
     Dosage: 30 MG, 1X/DAY
     Route: 064
     Dates: start: 20170204, end: 201705

REACTIONS (4)
  - Maternal exposure during pregnancy [Recovered/Resolved]
  - Pyrexia [Recovered/Resolved]
  - Bronchiolitis [Recovered/Resolved]
  - Hereditary spherocytosis [Unknown]

NARRATIVE: CASE EVENT DATE: 20170204
